FAERS Safety Report 8391356-6 (Version None)
Quarter: 2012Q2

REPORT INFORMATION
  Report Type: 
  Country: None (occurrence: None)
  Receive Date: 20120529
  Receipt Date: 20120516
  Transmission Date: 20120825
  Serious: Yes (Hospitalization)
  Sender: FDA-Public Use
  Company Number: JP-JNJFOC-20120403757

PATIENT
  Sex: Female
  Weight: 57 kg

DRUGS (10)
  1. PALIPERIDONE [Suspect]
     Route: 048
     Dates: start: 20111209, end: 20111227
  2. SEROQUEL [Concomitant]
     Indication: SCHIZOPHRENIA, DISORGANISED TYPE
     Route: 048
  3. PALIPERIDONE [Suspect]
     Indication: SCHIZOPHRENIA, DISORGANISED TYPE
     Route: 048
     Dates: start: 20111228
  4. PALIPERIDONE [Suspect]
     Route: 048
     Dates: start: 20111123, end: 20111208
  5. FLUDECASIN [Suspect]
     Indication: SCHIZOPHRENIA, DISORGANISED TYPE
  6. ARTANE [Concomitant]
     Indication: PROPHYLAXIS
     Route: 048
  7. FERROUS SULFATE TAB [Concomitant]
     Indication: SCHIZOPHRENIA, DISORGANISED TYPE
     Route: 048
  8. BLONANSERIN [Suspect]
     Indication: SCHIZOPHRENIA, DISORGANISED TYPE
     Route: 048
     Dates: start: 20110921, end: 20111122
  9. DIAZEPAM [Concomitant]
     Indication: SCHIZOPHRENIA, DISORGANISED TYPE
     Route: 048
  10. VALPROATE SODIUM [Concomitant]
     Indication: SCHIZOPHRENIA, DISORGANISED TYPE
     Route: 048

REACTIONS (2)
  - RESTLESS LEGS SYNDROME [None]
  - CONSTIPATION [None]
